FAERS Safety Report 12631708 (Version 2)
Quarter: 2016Q3

REPORT INFORMATION
  Report Type: Spontaneous
  Country: US (occurrence: US)
  Receive Date: 20160808
  Receipt Date: 20160808
  Transmission Date: 20161109
  Serious: No
  Sender: FDA-Public Use
  Company Number: US-BEH-2016060763

PATIENT
  Sex: Male
  Weight: 110 kg

DRUGS (17)
  1. EPIPEN [Concomitant]
     Active Substance: EPINEPHRINE
  2. FAMOTIDINE. [Concomitant]
     Active Substance: FAMOTIDINE
  3. LEUCOVORIN. [Concomitant]
     Active Substance: LEUCOVORIN
  4. PREDNISONE. [Concomitant]
     Active Substance: PREDNISONE
  5. HEPARIN [Concomitant]
     Active Substance: HEPARIN SODIUM
  6. SOLU-MEDROL [Concomitant]
     Active Substance: METHYLPREDNISOLONE SODIUM SUCCINATE
  7. ACETAMINOPHEN. [Concomitant]
     Active Substance: ACETAMINOPHEN
  8. HIZENTRA [Suspect]
     Active Substance: HUMAN IMMUNOGLOBULIN G
     Indication: DERMATOMYOSITIS
     Route: 058
  9. L-M-X [Concomitant]
  10. LIDOCAINE/PRILOCAINE [Concomitant]
     Active Substance: LIDOCAINE\PRILOCAINE
  11. NAPROXEN. [Concomitant]
     Active Substance: NAPROXEN
  12. DIPHENHYDRAMINE. [Concomitant]
     Active Substance: DIPHENHYDRAMINE
  13. SODIUM CHLORIDE. [Concomitant]
     Active Substance: SODIUM CHLORIDE
  14. VITAMIN D3 [Concomitant]
     Active Substance: CHOLECALCIFEROL
  15. METHOTREXATE. [Concomitant]
     Active Substance: METHOTREXATE
  16. NORMAL SALINE [Concomitant]
     Active Substance: SODIUM CHLORIDE
  17. VITAMIN D2 [Concomitant]
     Active Substance: ERGOCALCIFEROL

REACTIONS (1)
  - Infusion site rash [Unknown]
